FAERS Safety Report 11538347 (Version 1)
Quarter: 2015Q3

REPORT INFORMATION
  Report Type: Spontaneous
  Country: US (occurrence: US)
  Receive Date: 20150922
  Receipt Date: 20150922
  Transmission Date: 20151125
  Serious: No
  Sender: FDA-Public Use
  Company Number: US-AQUA-2014AQU000024

PATIENT
  Age: 85 Year
  Sex: Female
  Weight: 78.93 kg

DRUGS (3)
  1. SYNTHROID [Concomitant]
     Active Substance: LEVOTHYROXINE SODIUM
  2. MICARDIS [Concomitant]
     Active Substance: TELMISARTAN
  3. XOLEGEL [Suspect]
     Active Substance: KETOCONAZOLE
     Indication: ROSACEA
     Route: 061
     Dates: start: 2014

REACTIONS (1)
  - Drug ineffective [Not Recovered/Not Resolved]

NARRATIVE: CASE EVENT DATE: 2014
